FAERS Safety Report 16682488 (Version 7)
Quarter: 2019Q4

REPORT INFORMATION
  Report Type: Spontaneous
  Country: US (occurrence: US)
  Receive Date: 20190808
  Receipt Date: 20191017
  Transmission Date: 20200122
  Serious: Yes (Hospitalization)
  Sender: FDA-Public Use
  Company Number: US-PFIZER INC-2019320733

PATIENT
  Age: 69 Year
  Sex: Female
  Weight: 97.52 kg

DRUGS (6)
  1. LYRICA [Suspect]
     Active Substance: PREGABALIN
     Indication: NEURALGIA
     Dosage: 50 MILLIGRAMS, BID
     Route: 048
  2. ELIQUIS [Suspect]
     Active Substance: APIXABAN
     Indication: PULMONARY EMBOLISM
     Dosage: UNK UNK, DAILY
     Dates: start: 201710
  3. INSULIN [Concomitant]
     Active Substance: INSULIN NOS
     Indication: DIABETES MELLITUS
     Dosage: 50 UNITS IN MORNING AND 40 UNITS IN EVENING
     Route: 058
  4. TRAMADOL. [Concomitant]
     Active Substance: TRAMADOL
     Indication: NEURALGIA
     Dosage: 50 MILLIGRAM, 1-2 TABLETS BY MOUTH TWICE A DAY AS NEEDED
     Route: 048
  5. ELIQUIS [Suspect]
     Active Substance: APIXABAN
     Indication: THROMBOSIS
     Dosage: 5 MILLIGRAMS, BID  (THERAPY START DATE: 06-07 DEC 2017)
     Route: 048
     Dates: start: 201712
  6. METFORMIN [Concomitant]
     Active Substance: METFORMIN HYDROCHLORIDE
     Indication: DIABETES MELLITUS
     Dosage: 1000 MILLIGRAM, BID
     Route: 065
     Dates: start: 1986

REACTIONS (3)
  - Sciatica [Unknown]
  - Nausea [Unknown]
  - Somnolence [Unknown]
